FAERS Safety Report 8622236-6 (Version None)
Quarter: 2012Q3

REPORT INFORMATION
  Report Type: 
  Country: None (occurrence: None)
  Receive Date: 20120827
  Receipt Date: 20120820
  Transmission Date: 20120928
  Serious: No
  Sender: FDA-Public Use
  Company Number: US-009507513-1208USA009080

PATIENT

DRUGS (1)
  1. SYLATRON [Suspect]
     Indication: MALIGNANT MELANOMA
     Dosage: 600 MICROGRAM, QW
     Route: 058
     Dates: start: 20120815

REACTIONS (2)
  - PYREXIA [None]
  - CHILLS [None]
